FAERS Safety Report 10275266 (Version 2)
Quarter: 2014Q3

REPORT INFORMATION
  Report Type: Spontaneous
  Country: CA (occurrence: CA)
  Receive Date: 20140703
  Receipt Date: 20140703
  Transmission Date: 20150326
  Serious: Yes (Hospitalization, Other)
  Sender: FDA-Public Use
  Company Number: CA-BRISTOL-MYERS SQUIBB COMPANY-20823019

PATIENT
  Age: 5 Decade
  Sex: Male

DRUGS (1)
  1. ABILIFY [Suspect]
     Active Substance: ARIPIPRAZOLE
     Indication: SCHIZOPHRENIA
     Dosage: 1DF: 5-10 MG
     Route: 048
     Dates: start: 2013

REACTIONS (3)
  - Multiple fractures [Unknown]
  - Agitation [Unknown]
  - Suicide attempt [Unknown]
